FAERS Safety Report 4416344-3 (Version None)
Quarter: 2004Q3

REPORT INFORMATION
  Report Type: 
  Country: None (occurrence: None)
  Receive Date: 20040805
  Receipt Date: 20040727
  Transmission Date: 20050211
  Serious: Yes (Hospitalization)
  Sender: FDA-Public Use
  Company Number: FR-ROCHE-375691

PATIENT
  Age: 72 Year
  Sex: Male
  Weight: 54 kg

DRUGS (5)
  1. ROCEPHIN [Suspect]
     Indication: DRUG USE FOR UNKNOWN INDICATION
     Route: 042
     Dates: start: 20040503, end: 20040510
  2. IMODIUM [Concomitant]
     Dosage: STOPPED ON 07 MAY AND RESTARTED ON 09 MAY.
     Route: 048
     Dates: start: 20040503, end: 20040511
  3. EUPANTOL [Concomitant]
     Dates: end: 20040510
  4. SANDOSTATIN [Concomitant]
     Route: 058
     Dates: start: 20040427, end: 20040511
  5. PRIMPERAN INJ [Concomitant]
     Route: 042
     Dates: start: 20040505, end: 20040511

REACTIONS (5)
  - ENCEPHALOPATHY [None]
  - NEUROTOXICITY [None]
  - RENAL FAILURE [None]
  - RESPIRATORY DEPRESSION [None]
  - RESPIRATORY TRACT CONGESTION [None]
